FAERS Safety Report 7997696-4 (Version None)
Quarter: 2011Q4

REPORT INFORMATION
  Report Type: 
  Country: None (occurrence: None)
  Receive Date: 20111221
  Receipt Date: 20111215
  Transmission Date: 20120403
  Serious: Yes (Hospitalization, Other)
  Sender: FDA-Public Use
  Company Number: US-ROCHE-794917

PATIENT
  Sex: Male
  Weight: 86.714 kg

DRUGS (3)
  1. ACCUTANE [Suspect]
     Dosage: 40MG AM AND 20MG PM
  2. ACCUTANE [Suspect]
     Indication: ACNE
     Route: 065
  3. ACCUTANE [Suspect]
     Dates: start: 20030408, end: 20030630

REACTIONS (5)
  - SUICIDAL IDEATION [None]
  - CROHN'S DISEASE [None]
  - DEPRESSION [None]
  - INFLAMMATORY BOWEL DISEASE [None]
  - COLITIS ULCERATIVE [None]
